FAERS Safety Report 22339762 (Version 3)
Quarter: 2023Q4

REPORT INFORMATION
  Report Type: Report from Study
  Country: MX (occurrence: MX)
  Receive Date: 20230518
  Receipt Date: 20231206
  Transmission Date: 20240110
  Serious: Yes (Death, Other)
  Sender: FDA-Public Use
  Company Number: MX-JNJFOC-20230202012

PATIENT
  Sex: Female
  Weight: 58 kg

DRUGS (2)
  1. BORTEZOMIB [Suspect]
     Active Substance: BORTEZOMIB
     Indication: Plasma cell myeloma
     Dosage: 2 MILLIGRAM
     Route: 041
     Dates: start: 20230207, end: 20230214
  2. DARZALEX [Suspect]
     Active Substance: DARATUMUMAB
     Indication: Plasma cell myeloma
     Dosage: 1100 MILLIGRAM, 1/WEEK
     Route: 041
     Dates: start: 20221220, end: 20230626

REACTIONS (3)
  - Plasma cell myeloma [Fatal]
  - Electrophoresis protein abnormal [Recovering/Resolving]
  - Drug ineffective [Unknown]
